FAERS Safety Report 9285699 (Version 2)
Quarter: 2013Q3

REPORT INFORMATION
  Report Type: Report from Study
  Country: HU (occurrence: HU)
  Receive Date: 20130513
  Receipt Date: 20130819
  Transmission Date: 20140515
  Serious: Yes (Hospitalization, Other)
  Sender: FDA-Public Use
  Company Number: HU-SANOFI-AVENTIS-2013SA046118

PATIENT
  Age: 69 Year
  Sex: Male
  Weight: 87 kg

DRUGS (13)
  1. CABAZITAXEL [Suspect]
     Indication: PROSTATE CANCER METASTATIC
     Route: 042
     Dates: start: 20130311, end: 20130429
  2. PREDNISONE [Suspect]
     Indication: PROSTATE CANCER METASTATIC
  3. NEBIVOLOL [Concomitant]
     Indication: HYPERTENSION
     Route: 048
     Dates: start: 1993, end: 20130420
  4. RAMIPRIL [Concomitant]
     Indication: HYPERTENSION
     Route: 048
     Dates: start: 1993, end: 20130429
  5. RAMIPRIL [Concomitant]
     Indication: HYPERTENSION
     Route: 048
     Dates: start: 20130420
  6. PREDNISOLONE [Concomitant]
     Indication: ADJUVANT THERAPY
     Route: 048
     Dates: start: 20130312, end: 20130420
  7. DEXAMETHASONE [Concomitant]
     Indication: PREMEDICATION
     Dosage: 1 IN 1 CYCLICAL
     Route: 048
     Dates: start: 20130312, end: 20130429
  8. QUAMATEL [Concomitant]
     Indication: PREMEDICATION
     Dosage: 1 IN 1 CYCLICAL
     Route: 042
     Dates: start: 20130312, end: 20130429
  9. ONDANSETRON [Concomitant]
     Indication: PREMEDICATION
     Dosage: 1 IN 1 CYCLICAL
     Route: 042
     Dates: start: 20130312, end: 20130429
  10. ZOLEDRONIC ACID [Concomitant]
     Indication: METASTASES TO BONE
     Route: 042
     Dates: start: 201002
  11. LEUPRORELIN [Concomitant]
     Indication: PROSTATE CANCER
     Dosage: ONCE IN 3 MONTHS
     Route: 058
     Dates: start: 201204
  12. CHLOROPYRAMINE [Concomitant]
     Indication: PREMEDICATION
     Dosage: 1 IN 1 CYCLICAL
     Route: 042
     Dates: start: 20130312, end: 20130429
  13. PANTOPRAZOLE [Concomitant]
     Indication: PROPHYLAXIS
     Route: 048
     Dates: start: 20130420

REACTIONS (3)
  - Acute myocardial infarction [Recovered/Resolved with Sequelae]
  - Dyslipidaemia [Recovering/Resolving]
  - Anaemia [Recovering/Resolving]
